FAERS Safety Report 16851556 (Version 2)
Quarter: 2019Q3

REPORT INFORMATION
  Report Type: Spontaneous
  Country: JP (occurrence: JP)
  Receive Date: 20190925
  Receipt Date: 20190925
  Transmission Date: 20191005
  Serious: Yes (Hospitalization)
  Sender: FDA-Public Use
  Company Number: PHHY2019JP220398

PATIENT
  Age: 77 Year
  Sex: Male

DRUGS (6)
  1. PREDNISOLONE. [Suspect]
     Active Substance: PREDNISOLONE
     Dosage: 0.14 MG/KG, UNK (FOR 1 YEAR)
     Route: 065
  2. PREDNISOLONE. [Suspect]
     Active Substance: PREDNISOLONE
     Indication: MICROSCOPIC POLYANGIITIS
     Dosage: 0.87 MG/KG, QD (BASELINE)
     Route: 065
  3. PREDNISOLONE. [Suspect]
     Active Substance: PREDNISOLONE
     Dosage: 0.14 MG/KG, UNK (FOR 2 YEARS)
     Route: 065
  4. PREDNISOLONE. [Suspect]
     Active Substance: PREDNISOLONE
     Dosage: 0.18 MG/KG, QD (AT 3 MONTHS)
     Route: 065
  5. PREDNISOLONE. [Suspect]
     Active Substance: PREDNISOLONE
     Dosage: 0.14 MG/KG, UNK (AT 6 MONTHS)
     Route: 065
  6. METHYLPREDNISOLONE. [Suspect]
     Active Substance: METHYLPREDNISOLONE
     Indication: MICROSCOPIC POLYANGIITIS
     Dosage: UNK UKN, UNK (3 CONSECUTIVE DAYS))
     Route: 065

REACTIONS (5)
  - Product use in unapproved indication [Unknown]
  - Oral candidiasis [Unknown]
  - Microscopic polyangiitis [Unknown]
  - Disease recurrence [Unknown]
  - Infection [Unknown]
